APPROVED DRUG PRODUCT: DEMECLOCYCLINE HYDROCHLORIDE
Active Ingredient: DEMECLOCYCLINE HYDROCHLORIDE
Strength: 150MG
Dosage Form/Route: TABLET;ORAL
Application: A065094 | Product #001
Applicant: IMPAX LABORATORIES INC
Approved: Mar 22, 2004 | RLD: No | RS: No | Type: DISCN